FAERS Safety Report 7859197 (Version 2)
Quarter: 2013Q4

REPORT INFORMATION
  Report Type: Spontaneous
  Country: US (occurrence: US)
  Receive Date: 20110316
  Receipt Date: 20131002
  Transmission Date: 20140711
  Serious: Yes (Hospitalization)
  Sender: FDA-Public Use
  Company Number: US-B.I. PHARMACEUTICALS,INC./RIDGEFIELD-2011-BP-04541BP

PATIENT
  Age: 81 Year
  Sex: Female
  Weight: 58.97 kg

DRUGS (9)
  1. PRADAXA [Suspect]
     Indication: ATRIAL FIBRILLATION
     Dosage: 300 MG
     Route: 048
     Dates: start: 20101208, end: 201106
  2. PRADAXA [Suspect]
     Dosage: 150 MG
     Dates: start: 201106, end: 201106
  3. PRADAXA [Suspect]
     Dosage: 300 MG
     Route: 048
     Dates: start: 201106, end: 20110624
  4. COREG [Concomitant]
     Indication: CARDIAC DISORDER
     Dosage: 25 MG
     Route: 048
     Dates: start: 2006
  5. COREG [Concomitant]
     Indication: HYPERTENSION
  6. LISINOPRIL [Concomitant]
     Dosage: 10 MG
     Route: 048
  7. PEPCID [Concomitant]
     Dosage: 20 MG
     Route: 048
  8. ADVIL [Concomitant]
     Indication: PAIN
  9. ALEVE [Concomitant]
     Indication: PAIN

REACTIONS (10)
  - Gastrointestinal haemorrhage [Unknown]
  - Haemorrhagic anaemia [Unknown]
  - Asthenia [Not Recovered/Not Resolved]
  - Dizziness [Not Recovered/Not Resolved]
  - Dyspepsia [Not Recovered/Not Resolved]
  - Malaise [Unknown]
  - Hypoaesthesia [Unknown]
  - Dizziness [Not Recovered/Not Resolved]
  - Fall [Not Recovered/Not Resolved]
  - Dyspepsia [Not Recovered/Not Resolved]
